FAERS Safety Report 7619516-X (Version None)
Quarter: 2011Q3

REPORT INFORMATION
  Report Type: 
  Country: None (occurrence: None)
  Receive Date: 20110719
  Receipt Date: 20110706
  Transmission Date: 20111222
  Serious: Yes (Other)
  Sender: FDA-Public Use
  Company Number: JP-UCBSA-031560

PATIENT
  Sex: Male
  Weight: 22 kg

DRUGS (5)
  1. KEPPRA [Suspect]
     Dates: start: 20110427
  2. GABAPENTIN [Concomitant]
     Indication: EPILEPSY
     Route: 048
     Dates: start: 20090408
  3. VALERIN [Concomitant]
     Indication: EPILEPSY
     Dosage: DAILY DOSE: 200 MG
     Route: 048
     Dates: start: 20031022
  4. KEPPRA [Suspect]
     Indication: EPILEPSY
     Route: 048
     Dates: start: 20110126, end: 20110208
  5. KEPPRA [Suspect]
     Route: 048
     Dates: start: 20110209, end: 20110426

REACTIONS (2)
  - MYOCLONIC EPILEPSY [None]
  - LIP DRY [None]
